FAERS Safety Report 10464227 (Version 2)
Quarter: 2014Q3

REPORT INFORMATION
  Report Type: Spontaneous
  Country: US (occurrence: US)
  Receive Date: 20140919
  Receipt Date: 20140919
  Transmission Date: 20150326
  Serious: Yes (Other)
  Sender: FDA-Public Use
  Company Number: US-BAUSCH-SYM-2014-21347

PATIENT
  Age: 41 Year
  Sex: Female
  Weight: 63.49 kg

DRUGS (5)
  1. BENZOYL PEROXIDE/CLINDAMYCIN PHOSPHATE [Suspect]
     Active Substance: BENZOYL PEROXIDE\CLINDAMYCIN PHOSPHATE
     Indication: ROSACEA
     Route: 061
     Dates: start: 20140508, end: 201405
  2. FINACEA [Concomitant]
     Active Substance: AZELAIC ACID
     Indication: PRODUCT USED FOR UNKNOWN INDICATION
  3. TRETINOIN. [Suspect]
     Active Substance: TRETINOIN
     Indication: SCAR
  4. TRETINOIN. [Suspect]
     Active Substance: TRETINOIN
     Indication: ROSACEA
     Dosage: ONE SMALL APPLICATION, SINGLE
     Route: 061
     Dates: start: 20140508, end: 20140508
  5. HYDROQUINONE. [Concomitant]
     Active Substance: HYDROQUINONE
     Indication: PRODUCT USED FOR UNKNOWN INDICATION

REACTIONS (13)
  - Hypersensitivity [Not Recovered/Not Resolved]
  - Application site exfoliation [Unknown]
  - Eye swelling [Recovered/Resolved]
  - Dry skin [Recovered/Resolved]
  - Skin discolouration [Recovered/Resolved]
  - Photosensitivity reaction [Recovered/Resolved]
  - Swelling face [Recovered/Resolved]
  - Erythema [Not Recovered/Not Resolved]
  - Insomnia [Recovered/Resolved]
  - Off label use [Unknown]
  - Application site pain [Unknown]
  - Rash [Recovered/Resolved]
  - Pruritus [Recovered/Resolved]

NARRATIVE: CASE EVENT DATE: 20140509
